FAERS Safety Report 18181787 (Version 1)
Quarter: 2020Q3

REPORT INFORMATION
  Report Type: Spontaneous
  Country: US (occurrence: US)
  Receive Date: 20200821
  Receipt Date: 20200821
  Transmission Date: 20201103
  Serious: Yes (Other)
  Sender: FDA-Public Use
  Company Number: NVSC2020US229674

PATIENT
  Age: 16 Month
  Sex: Male

DRUGS (7)
  1. ETOPOSIDE. [Suspect]
     Active Substance: ETOPOSIDE
     Indication: NEUROBLASTOMA
     Dosage: OVER 3 MONTHS
     Route: 065
  2. ACTH [Concomitant]
     Active Substance: CORTICOTROPIN
     Indication: OPSOCLONUS MYOCLONUS
     Dosage: MONTHLY
     Route: 065
  3. DOXORUBICIN [Suspect]
     Active Substance: DOXORUBICIN
     Indication: NEUROBLASTOMA
     Dosage: OVER 3 MONTHS
     Route: 065
  4. RITUXIMAB. [Concomitant]
     Active Substance: RITUXIMAB
     Indication: OPSOCLONUS MYOCLONUS
     Dosage: MONTHLY
     Route: 065
  5. CARBOPLATIN. [Suspect]
     Active Substance: CARBOPLATIN
     Indication: NEUROBLASTOMA
     Dosage: OVER 3 MONTHS
     Route: 065
  6. DEXAMETHASONE. [Concomitant]
     Active Substance: DEXAMETHASONE
     Indication: OPSOCLONUS MYOCLONUS
     Dosage: HIGH DOSE
     Route: 065
  7. CYCLOPHOSPHAMIDE. [Suspect]
     Active Substance: CYCLOPHOSPHAMIDE
     Indication: NEUROBLASTOMA
     Dosage: OVER 3 MONTHS
     Route: 065

REACTIONS (2)
  - Product use in unapproved indication [Unknown]
  - Neuroblastoma recurrent [Unknown]
